FAERS Safety Report 4995518-7 (Version None)
Quarter: 2006Q2

REPORT INFORMATION
  Report Type: 
  Country: None (occurrence: None)
  Receive Date: 20060508
  Receipt Date: 20060220
  Transmission Date: 20061013
  Serious: Yes (Other)
  Sender: FDA-Public Use
  Company Number: CA-ROCHE-437154

PATIENT
  Age: 16 Year
  Sex: Female
  Weight: 44.9 kg

DRUGS (1)
  1. ACCUTANE [Suspect]
     Route: 048
     Dates: start: 20060208, end: 20060213

REACTIONS (2)
  - ANXIETY [None]
  - PANIC ATTACK [None]
